FAERS Safety Report 20419515 (Version 2)
Quarter: 2022Q1

REPORT INFORMATION
  Report Type: Spontaneous
  Country: US (occurrence: US)
  Receive Date: 20220203
  Receipt Date: 20220328
  Transmission Date: 20220423
  Serious: No
  Sender: FDA-Public Use
  Company Number: US-GW PHARMA-202201USGW00454

PATIENT
  Sex: Male
  Weight: 19.501 kg

DRUGS (2)
  1. EPIDIOLEX [Suspect]
     Active Substance: CANNABIDIOL
     Indication: Lennox-Gastaut syndrome
     Dosage: 200 MILLIGRAM
     Route: 048
     Dates: start: 202110, end: 2021
  2. EPIDIOLEX [Suspect]
     Active Substance: CANNABIDIOL
     Dosage: 100 MILIGRAM
     Route: 048
     Dates: start: 202111

REACTIONS (5)
  - Mood altered [Unknown]
  - Sleep disorder [Unknown]
  - Anger [Unknown]
  - Poor quality sleep [Unknown]
  - Aggression [Unknown]
